FAERS Safety Report 18360945 (Version 3)
Quarter: 2021Q1

REPORT INFORMATION
  Report Type: Spontaneous
  Country: US (occurrence: US)
  Receive Date: 20201008
  Receipt Date: 20210111
  Transmission Date: 20210419
  Serious: No
  Sender: FDA-Public Use
  Company Number: US-SA-2020SA278033

PATIENT
  Age: 43 Year
  Sex: Female
  Weight: 68 kg

DRUGS (4)
  1. DUPIXENT [Suspect]
     Active Substance: DUPILUMAB
     Indication: ASTHMA
     Dosage: 300 MG, QOW
     Route: 058
     Dates: start: 20200129, end: 202010
  2. FASENRA [Concomitant]
     Active Substance: BENRALIZUMAB
     Dosage: UNK
     Dates: start: 202010
  3. ZANTAC [Concomitant]
     Active Substance: RANITIDINE HYDROCHLORIDE
     Dosage: UNK
  4. DAILY VITE [COLECALCIFEROL;CYANOCOBALAMIN;ERGOCALCIFEROL;NICOTINAMIDE; [Concomitant]
     Dosage: UNK

REACTIONS (8)
  - Respiratory tract congestion [Not Recovered/Not Resolved]
  - Nasal congestion [Not Recovered/Not Resolved]
  - Middle insomnia [Not Recovered/Not Resolved]
  - Unevaluable event [Unknown]
  - Cough [Unknown]
  - Ocular hyperaemia [Unknown]
  - Conjunctivitis [Unknown]
  - Product use issue [Unknown]

NARRATIVE: CASE EVENT DATE: 2020
